FAERS Safety Report 4961293-5 (Version None)
Quarter: 2006Q1

REPORT INFORMATION
  Report Type: 
  Country: None (occurrence: None)
  Receive Date: 20060201
  Receipt Date: 20051121
  Transmission Date: 20060701
  Serious: No
  Sender: FDA-Public Use
  Company Number: 2005PV005232

PATIENT
  Sex: Female

DRUGS (1)
  1. BYETTA [Suspect]
     Dates: start: 20050101

REACTIONS (2)
  - DYSPNOEA [None]
  - FEELING ABNORMAL [None]
